FAERS Safety Report 7499266-3 (Version None)
Quarter: 2011Q2

REPORT INFORMATION
  Report Type: 
  Country: None (occurrence: None)
  Receive Date: 20110524
  Receipt Date: 20110513
  Transmission Date: 20111010
  Serious: Yes (Other)
  Sender: FDA-Public Use
  Company Number: US-AMGEN-USASP2011017368

PATIENT
  Age: 62 Year
  Sex: Female

DRUGS (2)
  1. ENBREL [Suspect]
     Indication: PSORIASIS
  2. ENBREL [Suspect]
     Indication: PSORIATIC ARTHROPATHY
     Dosage: 50 MG, QWK
     Dates: start: 20031120

REACTIONS (6)
  - GOUT [None]
  - PSORIATIC ARTHROPATHY [None]
  - HEPATIC CIRRHOSIS [None]
  - NEPHROLITHIASIS [None]
  - KIDNEY INFECTION [None]
  - PSORIASIS [None]
